FAERS Safety Report 9752890 (Version 1)
Quarter: 2013Q4

REPORT INFORMATION
  Report Type: Spontaneous
  Country: US (occurrence: US)
  Receive Date: 20131213
  Receipt Date: 20131213
  Transmission Date: 20140711
  Serious: No
  Sender: FDA-Public Use
  Company Number: US-GLAXOSMITHKLINE-A1004908A

PATIENT
  Age: 71 Year
  Sex: Female
  Weight: 81.5 kg

DRUGS (6)
  1. ARZERRA [Suspect]
     Indication: CHRONIC LYMPHOCYTIC LEUKAEMIA
     Dates: start: 20121109
  2. LISINOPRIL [Concomitant]
  3. ZYRTEC [Concomitant]
  4. WARFARIN [Concomitant]
  5. VERAMYST [Concomitant]
  6. VITAMIN D [Concomitant]

REACTIONS (2)
  - Hypertension [Recovered/Resolved]
  - Blood pressure diastolic increased [Unknown]
